FAERS Safety Report 4719622-3 (Version None)
Quarter: 2005Q3

REPORT INFORMATION
  Report Type: 
  Country: None (occurrence: None)
  Receive Date: 20050721
  Receipt Date: 20040413
  Transmission Date: 20060218
  Serious: Yes (Other)
  Sender: FDA-Public Use
  Company Number: US-GLAXOSMITHKLINE-A0508236A

PATIENT
  Sex: Female
  Weight: 104.5 kg

DRUGS (25)
  1. AVANDIA [Suspect]
     Dosage: 4MG PER DAY
     Route: 048
     Dates: start: 20010904, end: 20021001
  2. NEXIUM [Concomitant]
  3. ALLEGRA [Concomitant]
     Dosage: 40MG PER DAY
  4. RELAFEN [Concomitant]
     Dosage: 2TAB PER DAY
  5. POTASSIUM CHLORIDE [Concomitant]
     Dosage: 2TAB PER DAY
  6. FLONASE [Concomitant]
     Dosage: 2SPR PER DAY
  7. FLEXERIL [Concomitant]
     Dosage: 10MG THREE TIMES PER DAY
  8. GLUCOTROL XL [Concomitant]
     Dosage: 2.5MG PER DAY
     Route: 048
  9. PREMARIN [Concomitant]
     Dosage: 2TAB PER DAY
  10. LABETALOL [Concomitant]
     Dosage: 300MG TWICE PER DAY
  11. ZESTRIL [Concomitant]
     Dosage: 10MG PER DAY
  12. HYDROCHLOROTHIAZIDE [Concomitant]
  13. CARAFATE [Concomitant]
     Indication: DRUG USE FOR UNKNOWN INDICATION
     Route: 048
  14. NEURONTIN [Concomitant]
     Indication: DRUG USE FOR UNKNOWN INDICATION
     Route: 048
  15. PROCTOSOL-HC [Concomitant]
     Indication: DRUG USE FOR UNKNOWN INDICATION
     Route: 054
  16. LIDODERM PATCH [Concomitant]
     Indication: DRUG USE FOR UNKNOWN INDICATION
     Route: 061
  17. PREVACID [Concomitant]
     Indication: DRUG USE FOR UNKNOWN INDICATION
     Route: 048
  18. AMOXICILLIN [Concomitant]
     Indication: DRUG USE FOR UNKNOWN INDICATION
     Route: 048
  19. HYDROCODONE + ACETAMINOPHEN [Concomitant]
     Indication: DRUG USE FOR UNKNOWN INDICATION
     Route: 048
  20. METHYLPREDNISOLONE [Concomitant]
     Indication: DRUG USE FOR UNKNOWN INDICATION
     Route: 048
  21. CELEBREX [Concomitant]
     Indication: DRUG USE FOR UNKNOWN INDICATION
     Route: 048
  22. VIOXX [Concomitant]
     Indication: DRUG USE FOR UNKNOWN INDICATION
     Route: 048
  23. TYLENOL W/ CODEINE NO. 3 [Concomitant]
     Indication: DRUG USE FOR UNKNOWN INDICATION
     Route: 048
  24. METOCLOPRAMIDE [Concomitant]
     Dosage: 10MG FOUR TIMES PER DAY
  25. DARVOCET [Concomitant]

REACTIONS (1)
  - CARDIAC FAILURE [None]
